FAERS Safety Report 8017899 (Version 5)
Quarter: 2013Q3

REPORT INFORMATION
  Report Type: Spontaneous
  Country: US (occurrence: US)
  Receive Date: 20110701
  Receipt Date: 20130819
  Transmission Date: 20140515
  Serious: Yes (Other)
  Sender: FDA-Public Use
  Company Number: US-BIOGENIDEC-2010BI044992

PATIENT
  Age: 31 Year
  Sex: Female

DRUGS (7)
  1. AVONEX [Suspect]
     Indication: MULTIPLE SCLEROSIS
     Route: 030
     Dates: start: 20100317, end: 20101123
  2. XANAX [Concomitant]
  3. AMANTADINE [Concomitant]
     Indication: FATIGUE
  4. SYNTHROID [Concomitant]
  5. PROGESTERONE [Concomitant]
  6. TESTOSTERONE [Concomitant]
  7. NEEVO DHA [Concomitant]

REACTIONS (1)
  - High risk pregnancy [Recovered/Resolved]
